FAERS Safety Report 9468169 (Version 1)
Quarter: 2013Q3

REPORT INFORMATION
  Report Type: Spontaneous
  Country: US (occurrence: US)
  Receive Date: 20130821
  Receipt Date: 20130821
  Transmission Date: 20140515
  Serious: No
  Sender: FDA-Public Use
  Company Number: US-BRACCO-009595

PATIENT
  Sex: Female

DRUGS (2)
  1. NORMAL SALINE [Concomitant]
     Dates: start: 20130419, end: 20130419
  2. KINEVAC [Suspect]
     Indication: DIAGNOSTIC PROCEDURE
     Dosage: 1.3 MCG DILUTED IN 50 ML IN NORMAL SALINE AT RATE OF 125 PER HOUR FOR 23 MINUTES
     Route: 042
     Dates: start: 20130419, end: 20130419

REACTIONS (3)
  - Faeces pale [Unknown]
  - Pelvic pain [Unknown]
  - Diarrhoea [Unknown]
